FAERS Safety Report 10418972 (Version 1)
Quarter: 2014Q3

REPORT INFORMATION
  Report Type: Spontaneous
  Country: DE (occurrence: DE)
  Receive Date: 20140829
  Receipt Date: 20140829
  Transmission Date: 20150326
  Serious: Yes (Other)
  Sender: FDA-Public Use
  Company Number: DE-TEVA-504459GER

PATIENT
  Age: 81 Year
  Sex: Male

DRUGS (2)
  1. FOLIC ACID. [Suspect]
     Active Substance: FOLIC ACID
     Route: 048
  2. FOLIC ACID. [Suspect]
     Active Substance: FOLIC ACID
     Indication: DRUG PROVOCATION TEST
     Route: 065

REACTIONS (7)
  - Flushing [Unknown]
  - Urticaria [Unknown]
  - Dyspnoea [Unknown]
  - Drug hypersensitivity [Unknown]
  - Vision blurred [Unknown]
  - Dizziness [Unknown]
  - Pruritus [Unknown]
